FAERS Safety Report 10244931 (Version 1)
Quarter: 2014Q2

REPORT INFORMATION
  Report Type: Spontaneous
  Country: US (occurrence: US)
  Receive Date: 20140618
  Receipt Date: 20140618
  Transmission Date: 20141212
  Serious: No
  Sender: FDA-Public Use
  Company Number: US-GALDERMA-US14000806

PATIENT
  Age: 48 Year
  Sex: Female

DRUGS (3)
  1. MIRVASO (BRIMONIDINE) TOPICAL GEL, 0.33% [Suspect]
     Indication: ROSACEA
     Dosage: 0.33%
     Route: 061
     Dates: start: 20140127, end: 20140221
  2. SYNTHROID (LEVOTHYROXINE) [Concomitant]
     Indication: HYPOTHYROIDISM
     Dosage: 0.125 MCG
     Route: 048
  3. AVEENO SKIN CALMING MOISTURIZER [Concomitant]
     Route: 061

REACTIONS (8)
  - Condition aggravated [Recovering/Resolving]
  - Dry skin [Recovering/Resolving]
  - Pallor [Recovered/Resolved]
  - Flushing [Recovering/Resolving]
  - Rash papular [Recovering/Resolving]
  - Skin burning sensation [Recovering/Resolving]
  - Erythema [Recovering/Resolving]
  - Off label use [Recovered/Resolved]
